FAERS Safety Report 8218521-2 (Version None)
Quarter: 2012Q1

REPORT INFORMATION
  Report Type: 
  Country: None (occurrence: None)
  Receive Date: 20120319
  Receipt Date: 20120314
  Transmission Date: 20120608
  Serious: Yes (Other)
  Sender: FDA-Public Use
  Company Number: US-PFIZER INC-2011197821

PATIENT
  Sex: Male

DRUGS (29)
  1. NORCO [Concomitant]
     Indication: PAIN
     Dosage: UNK
     Dates: start: 20020101
  2. LORCET-HD [Concomitant]
     Indication: PAIN
     Dosage: UNK
     Dates: start: 20020101
  3. ACETYLSALICYLIC ACID [Concomitant]
     Indication: CEREBROVASCULAR DISORDER
  4. ACETAMINOPHEN [Concomitant]
     Indication: PAIN
     Dosage: UNK
     Dates: start: 20050101, end: 20080101
  5. ATIVAN [Concomitant]
     Indication: POST-TRAUMATIC STRESS DISORDER
     Dosage: UNK
     Dates: start: 20040101, end: 20070101
  6. CYMBALTA [Concomitant]
     Indication: POST-TRAUMATIC STRESS DISORDER
     Dosage: UNK
     Dates: start: 20040101, end: 20070101
  7. PAXIL [Concomitant]
     Indication: POST-TRAUMATIC STRESS DISORDER
     Dosage: UNK
     Dates: start: 20020101, end: 20070101
  8. LORTAB [Concomitant]
     Indication: PAIN
     Dosage: UNK
     Dates: start: 20020101
  9. CADUET [Concomitant]
     Indication: HYPERTENSION
     Dosage: UNK
     Dates: start: 20040101
  10. RISPERDAL [Concomitant]
     Indication: POST-TRAUMATIC STRESS DISORDER
     Dosage: UNK
     Dates: start: 20040101, end: 20070101
  11. VALIUM [Concomitant]
     Indication: POST-TRAUMATIC STRESS DISORDER
  12. LOPERAMIDE [Concomitant]
     Indication: IRRITABLE BOWEL SYNDROME
     Dosage: UNK
     Dates: start: 20040101, end: 20080101
  13. MIRALAX [Concomitant]
     Indication: CONSTIPATION
     Dosage: UNK
     Dates: start: 20050101, end: 20090101
  14. RISPERDAL [Concomitant]
     Indication: DEPRESSION
  15. CHANTIX [Suspect]
     Indication: SMOKING CESSATION THERAPY
     Dosage: STARTER PACK , UNK
     Dates: start: 20070622, end: 20070803
  16. SOMA [Concomitant]
     Indication: PAIN
     Dosage: UNK
     Dates: start: 20060101, end: 20080101
  17. KLOR-CON [Concomitant]
     Indication: BLOOD POTASSIUM
     Dosage: UNK
     Dates: start: 20040101
  18. LOPRESSOR [Concomitant]
     Indication: HYPERTENSION
     Dosage: UNK
     Dates: start: 20040101
  19. CATAPRES [Concomitant]
     Indication: HYPERTENSION
     Dosage: UNK
     Dates: start: 20040101
  20. FLEXERIL [Concomitant]
     Indication: PAIN
     Dosage: UNK
     Dates: start: 20040101
  21. ACETYLSALICYLIC ACID [Concomitant]
     Indication: PAIN
     Dosage: UNK
     Dates: start: 20020101
  22. ACETYLSALICYLIC ACID [Concomitant]
     Indication: CORONARY ARTERY DISEASE
  23. PAXIL [Concomitant]
     Indication: DEPRESSION
  24. TOPROL-XL [Concomitant]
     Indication: HYPERTENSION
     Dosage: UNK
     Dates: start: 20040101
  25. NORVASC [Concomitant]
     Indication: HYPERTENSION
     Dosage: UNK
     Dates: start: 20040101
  26. BENTYL [Concomitant]
     Indication: IRRITABLE BOWEL SYNDROME
     Dosage: UNK
     Dates: start: 20060101, end: 20080101
  27. ATIVAN [Concomitant]
     Indication: ANXIETY
  28. VALIUM [Concomitant]
     Indication: ANXIETY
     Dosage: UNK
     Dates: start: 20020101
  29. CYMBALTA [Concomitant]
     Indication: DEPRESSION

REACTIONS (2)
  - DEPRESSION [None]
  - ANXIETY [None]
